FAERS Safety Report 9467530 (Version 1)
Quarter: 2013Q3

REPORT INFORMATION
  Report Type: Spontaneous
  Country: AU (occurrence: AU)
  Receive Date: 20130821
  Receipt Date: 20130821
  Transmission Date: 20140515
  Serious: Yes (Disabling)
  Sender: FDA-Public Use
  Company Number: AU-AMGEN-AUSSP2013058164

PATIENT
  Age: 74 Year
  Sex: Male

DRUGS (9)
  1. ARANESP [Suspect]
     Indication: PRODUCT USED FOR UNKNOWN INDICATION
     Dosage: UNK
     Route: 065
  2. BACTRIM [Suspect]
     Indication: PRODUCT USED FOR UNKNOWN INDICATION
     Route: 065
  3. BONEFOS [Suspect]
     Indication: PRODUCT USED FOR UNKNOWN INDICATION
     Route: 065
  4. CLEXANE [Suspect]
     Indication: PRODUCT USED FOR UNKNOWN INDICATION
     Route: 065
  5. REVLIMID [Suspect]
     Indication: PLASMA CELL MYELOMA
     Dosage: 5 MG, 3 TIMES/WK
     Route: 048
     Dates: start: 20120622
  6. VENTOLIN /00139501/ [Suspect]
     Indication: PRODUCT USED FOR UNKNOWN INDICATION
     Dosage: UNK
     Route: 065
  7. ZANIDIP [Suspect]
     Indication: PRODUCT USED FOR UNKNOWN INDICATION
     Route: 065
  8. DEXAMETHASONE [Concomitant]
     Route: 065
  9. THALIDOMIDE [Concomitant]
     Route: 065

REACTIONS (1)
  - Neuropathy peripheral [Unknown]
